FAERS Safety Report 7540281-9 (Version None)
Quarter: 2011Q2

REPORT INFORMATION
  Report Type: 
  Country: None (occurrence: None)
  Receive Date: 20110610
  Receipt Date: 20110609
  Transmission Date: 20111010
  Serious: Yes (Death)
  Sender: FDA-Public Use
  Company Number: PHHY2011US50196

PATIENT
  Sex: Female
  Weight: 65 kg

DRUGS (1)
  1. EXJADE [Suspect]
     Indication: MALNUTRITION
     Dosage: 500 MG, QOD
     Route: 048
     Dates: start: 20080402, end: 20110520

REACTIONS (1)
  - DEATH [None]
